FAERS Safety Report 4380244-8 (Version None)
Quarter: 2004Q2

REPORT INFORMATION
  Report Type: 
  Country: None (occurrence: None)
  Receive Date: 20040616
  Receipt Date: 20040616
  Transmission Date: 20050107
  Serious: No
  Sender: FDA-Public Use
  Company Number: None

PATIENT
  Sex: Female

DRUGS (2)
  1. PRECOSE [Suspect]
     Dosage: 1 TABLET ORAL
     Route: 048
     Dates: start: 20040403, end: 20040410
  2. PACERONE [Suspect]

REACTIONS (1)
  - MEDICATION ERROR [None]
